FAERS Safety Report 5067699-0 (Version None)
Quarter: 2006Q3

REPORT INFORMATION
  Report Type: 
  Country: None (occurrence: None)
  Receive Date: 20060802
  Receipt Date: 20060717
  Transmission Date: 20061208
  Serious: Yes (Hospitalization)
  Sender: FDA-Public Use
  Company Number: US-AMGEN-US186497

PATIENT
  Sex: Female
  Weight: 97.2 kg

DRUGS (13)
  1. ARANESP [Suspect]
     Indication: RENAL FAILURE CHRONIC
     Route: 058
     Dates: start: 20040802, end: 20060720
  2. MIRAPEX [Concomitant]
     Route: 065
  3. ALLOPURINOL [Concomitant]
     Route: 048
     Dates: start: 20050801
  4. PLAVIX [Concomitant]
     Route: 065
  5. METOPROLOL [Concomitant]
     Route: 065
  6. VYTORIN [Concomitant]
     Route: 065
  7. IMDUR [Concomitant]
     Route: 065
  8. TRAMADOL HCL [Concomitant]
     Route: 065
  9. SYNTHROID [Concomitant]
     Route: 065
  10. POTASSIUM [Concomitant]
     Route: 065
  11. LASIX [Concomitant]
     Route: 065
  12. ZYRTEC [Concomitant]
     Route: 065
  13. LORTAB [Concomitant]
     Route: 065

REACTIONS (4)
  - ANAEMIA [None]
  - DIZZINESS [None]
  - HYPOGLYCAEMIA [None]
  - THERAPEUTIC RESPONSE DECREASED [None]
